FAERS Safety Report 20908534 (Version 1)
Quarter: 2022Q2

REPORT INFORMATION
  Report Type: Spontaneous
  Country: US (occurrence: US)
  Receive Date: 20220603
  Receipt Date: 20220603
  Transmission Date: 20220720
  Serious: No
  Sender: FDA-Public Use
  Company Number: US-BRISTOL-MYERS SQUIBB COMPANY-2022-016666

PATIENT
  Age: 69 Year
  Sex: Female
  Weight: 83.46 kg

DRUGS (3)
  1. ORENCIA [Suspect]
     Active Substance: ABATACEPT
     Indication: Rheumatoid arthritis
     Dosage: ONCE A MONTH
     Route: 058
     Dates: end: 2017
  2. VITAMIN C [Concomitant]
     Active Substance: ASCORBIC ACID
     Indication: Gastrooesophageal reflux disease
  3. VITAMIN D3 [Concomitant]
     Active Substance: CHOLECALCIFEROL
     Indication: Gastrooesophageal reflux disease

REACTIONS (2)
  - Injection site swelling [Unknown]
  - Injection site erythema [Unknown]
